FAERS Safety Report 5521909-1 (Version None)
Quarter: 2007Q4

REPORT INFORMATION
  Report Type: 
  Country: None (occurrence: None)
  Receive Date: 20071120
  Receipt Date: 20060616
  Transmission Date: 20080405
  Serious: No
  Sender: FDA-Public Use
  Company Number: US-BRISTOL-MYERS SQUIBB COMPANY-13415203

PATIENT
  Age: 66 Year
  Sex: Male
  Weight: 120 kg

DRUGS (10)
  1. AVALIDE [Suspect]
     Indication: HYPERTENSION
     Route: 048
  2. TOPROL-XL [Concomitant]
  3. ACTOS [Concomitant]
  4. GLEEVEC [Concomitant]
     Indication: CHRONIC MYELOID LEUKAEMIA
  5. NEXIUM [Concomitant]
  6. GLIPIZIDE [Concomitant]
  7. FOLIC ACID [Concomitant]
  8. TRICOR [Concomitant]
  9. TYLENOL W/ CODEINE NO. 3 [Concomitant]
  10. PRAVASTATIN SODIUM [Concomitant]

REACTIONS (2)
  - DIZZINESS [None]
  - DYSGEUSIA [None]
